FAERS Safety Report 8023775-1 (Version None)
Quarter: 2012Q1

REPORT INFORMATION
  Report Type: 
  Country: None (occurrence: None)
  Receive Date: 20120103
  Receipt Date: 20120103
  Transmission Date: 20120608
  Serious: No
  Sender: FDA-Public Use
  Company Number: None

PATIENT
  Age: 27 Year
  Sex: Female
  Weight: 59 kg

DRUGS (1)
  1. RISPERIDONE [Suspect]
     Indication: PSYCHOTHERAPY
     Dosage: 1 MG AT BEDTIME PO
     Route: 048
     Dates: start: 20110803, end: 20110818

REACTIONS (3)
  - DYSKINESIA [None]
  - MUSCLE TWITCHING [None]
  - EXTRAPYRAMIDAL DISORDER [None]
